FAERS Safety Report 25033334 (Version 2)
Quarter: 2025Q2

REPORT INFORMATION
  Report Type: Report from Study
  Country: US (occurrence: US)
  Receive Date: 20250303
  Receipt Date: 20250516
  Transmission Date: 20250717
  Serious: Yes (Hospitalization)
  Sender: ARDELYX
  Company Number: US-ARDELYX-2025ARDX001054

PATIENT
  Age: 53 Year
  Sex: Female

DRUGS (2)
  1. IBSRELA [Suspect]
     Active Substance: TENAPANOR HYDROCHLORIDE
     Indication: Irritable bowel syndrome
     Route: 048
  2. OZEMPIC [Suspect]
     Active Substance: SEMAGLUTIDE
     Indication: Product used for unknown indication
     Route: 058
     Dates: start: 20250505

REACTIONS (5)
  - Diarrhoea [Unknown]
  - Hospitalisation [Unknown]
  - Intentional dose omission [Unknown]
  - Nausea [Unknown]
  - Hypophagia [Unknown]

NARRATIVE: CASE EVENT DATE: 20250505
